FAERS Safety Report 9251331 (Version 2)
Quarter: 2014Q1

REPORT INFORMATION
  Report Type: Spontaneous
  Country: US (occurrence: US)
  Receive Date: 20130424
  Receipt Date: 20140110
  Transmission Date: 20141002
  Serious: Yes (Hospitalization, Other)
  Sender: FDA-Public Use
  Company Number: US-ASTRAZENECA-2013SE27380

PATIENT
  Age: 66 Year
  Sex: Female
  Weight: 90.7 kg

DRUGS (17)
  1. NEXIUM [Suspect]
     Indication: DYSPEPSIA
     Route: 048
     Dates: start: 20030102
  2. NEXIUM [Suspect]
     Indication: DYSPEPSIA
     Route: 048
     Dates: start: 20031002, end: 20090917
  3. ZANTAC [Concomitant]
  4. PEPCID OTC [Concomitant]
  5. TUMS [Concomitant]
  6. MILK OF MAGNESIA [Concomitant]
  7. PEPTO BISMOL [Concomitant]
     Indication: DYSPEPSIA
  8. MYLANTA [Concomitant]
  9. ROLANDS [Concomitant]
  10. CITALOPRAM [Concomitant]
     Indication: DEPRESSION
  11. CYCLOBENZAPRINE [Concomitant]
     Indication: MUSCLE SPASMS
  12. GABAPENTIN [Concomitant]
     Indication: NERVE INJURY
  13. LISINOPRIL [Concomitant]
     Indication: BLOOD PRESSURE
  14. PENTASA [Concomitant]
  15. TRAZODINE [Concomitant]
  16. PROMETHAZONE [Concomitant]
  17. FISH OIL [Concomitant]

REACTIONS (16)
  - Ulcer haemorrhage [Unknown]
  - Gastrointestinal disorder [Unknown]
  - Thyroid disorder [Unknown]
  - Fall [Unknown]
  - Osteoporosis [Unknown]
  - Bone disorder [Unknown]
  - Foot fracture [Unknown]
  - Spinal fracture [Unknown]
  - Wrist fracture [Unknown]
  - Calcium deficiency [Unknown]
  - Crohn^s disease [Unknown]
  - Hypothyroidism [Unknown]
  - Scoliosis [Unknown]
  - Vitamin D deficiency [Unknown]
  - Arthritis [Unknown]
  - Compression fracture [Unknown]
